FAERS Safety Report 12328780 (Version 4)
Quarter: 2016Q3

REPORT INFORMATION
  Report Type: Spontaneous
  Country: US (occurrence: US)
  Receive Date: 20160503
  Receipt Date: 20160808
  Transmission Date: 20161109
  Serious: No
  Sender: FDA-Public Use
  Company Number: US-BEH-2015050727

PATIENT
  Sex: Male
  Weight: 82.1 kg

DRUGS (31)
  1. RIBOFLAVIN [Concomitant]
     Active Substance: RIBOFLAVIN
     Route: 048
  2. ROPINIROLE HCL [Concomitant]
     Active Substance: ROPINIROLE HYDROCHLORIDE
     Route: 048
  3. BUDESONIDE. [Concomitant]
     Active Substance: BUDESONIDE
     Route: 055
  4. SYMBICORT [Concomitant]
     Active Substance: BUDESONIDE\FORMOTEROL FUMARATE DIHYDRATE
     Dosage: 2 PUFFS
     Route: 055
  5. VITAMIN D3 [Concomitant]
     Active Substance: CHOLECALCIFEROL
     Route: 048
  6. LEVETIRACETAM. [Concomitant]
     Active Substance: LEVETIRACETAM
     Route: 048
  7. SIMVASTATIN. [Concomitant]
     Active Substance: SIMVASTATIN
  8. ALBUTEROL. [Concomitant]
     Active Substance: ALBUTEROL
     Route: 055
  9. MULTIVITAMIN [Concomitant]
     Active Substance: VITAMINS
     Route: 048
  10. LAMOTRIGINE. [Concomitant]
     Active Substance: LAMOTRIGINE
     Route: 048
  11. CENTRUM COMPLETE [Concomitant]
     Route: 048
  12. SINGULAIR [Concomitant]
     Active Substance: MONTELUKAST SODIUM
     Route: 048
  13. HIZENTRA [Suspect]
     Active Substance: HUMAN IMMUNOGLOBULIN G
     Indication: IMMUNODEFICIENCY COMMON VARIABLE
     Route: 058
  14. CLONAZEPAM. [Concomitant]
     Active Substance: CLONAZEPAM
     Route: 048
  15. ASPIRIN. [Concomitant]
     Active Substance: ASPIRIN
     Route: 048
  16. EPIPEN [Concomitant]
     Active Substance: EPINEPHRINE
  17. LMX [Concomitant]
     Active Substance: LIDOCAINE
     Route: 061
  18. CYANOCOBALAMIN. [Concomitant]
     Active Substance: CYANOCOBALAMIN
  19. KEPPRA [Concomitant]
     Active Substance: LEVETIRACETAM
     Route: 048
  20. EQL OMEPRAZOLE DR [Concomitant]
     Route: 048
  21. LORAZEPAM. [Concomitant]
     Active Substance: LORAZEPAM
     Route: 048
  22. DIPHENHYDRAMINE. [Concomitant]
     Active Substance: DIPHENHYDRAMINE
     Route: 048
  23. ZYRTEC [Concomitant]
     Active Substance: CETIRIZINE HYDROCHLORIDE
     Route: 048
  24. LISINOPRIL. [Concomitant]
     Active Substance: LISINOPRIL
     Route: 048
  25. SPIRIVA [Concomitant]
     Active Substance: TIOTROPIUM BROMIDE MONOHYDRATE
     Route: 055
  26. HIZENTRA [Suspect]
     Active Substance: HUMAN IMMUNOGLOBULIN G
     Route: 058
  27. ACETYLCYSTEINE. [Concomitant]
     Active Substance: ACETYLCYSTEINE
  28. PROVENTIL HFA [Concomitant]
     Active Substance: ALBUTEROL SULFATE
     Route: 055
  29. HIZENTRA [Suspect]
     Active Substance: HUMAN IMMUNOGLOBULIN G
     Route: 058
  30. FISH OIL + VITAMIN D3 [Concomitant]
  31. VITAMIN B12 [Concomitant]
     Active Substance: CYANOCOBALAMIN
     Route: 048

REACTIONS (6)
  - Administration site irritation [Unknown]
  - Injection site erythema [Unknown]
  - Injection site swelling [Unknown]
  - Urticaria [Unknown]
  - Administration site reaction [Unknown]
  - Injection site pain [Unknown]
